FAERS Safety Report 5713703-3 (Version None)
Quarter: 2008Q2

REPORT INFORMATION
  Report Type: 
  Country: None (occurrence: None)
  Receive Date: 20080418
  Receipt Date: 20080407
  Transmission Date: 20081010
  Serious: Yes (Hospitalization)
  Sender: FDA-Public Use
  Company Number: ENT 2008-0042

PATIENT
  Age: 74 Year
  Sex: Female

DRUGS (7)
  1. COMTAN [Suspect]
     Indication: DRUG EFFECT DECREASED
     Dosage: 400 MG ORAL
     Route: 048
     Dates: start: 20070928
  2. MENESIT [Suspect]
     Indication: PARKINSON'S DISEASE
     Dosage: 500 MG ORAL
     Route: 048
     Dates: start: 20031024
  3. CABASER [Suspect]
     Indication: PARKINSON'S DISEASE
     Dosage: 3 MG ORAL
     Route: 048
     Dates: start: 20031024
  4. DOMIN (TALIPEXOLE) [Suspect]
     Indication: PARKINSON'S DISEASE
     Dosage: 0.4 MG ORAL
     Route: 048
     Dates: start: 20061122
  5. FP (SELEGILINE) [Suspect]
     Indication: PARKINSON'S DISEASE
     Dosage: 0.2 MG ORAL
     Route: 048
     Dates: start: 20061216
  6. ALDACTONE [Concomitant]
  7. MEVALOTIN [Concomitant]

REACTIONS (4)
  - ACTIVITIES OF DAILY LIVING IMPAIRED [None]
  - CONDITION AGGRAVATED [None]
  - FALL [None]
  - GAIT DISTURBANCE [None]
